FAERS Safety Report 11716124 (Version 2)
Quarter: 2016Q1

REPORT INFORMATION
  Report Type: Spontaneous
  Country: GB (occurrence: GB)
  Receive Date: 20151109
  Receipt Date: 20160114
  Transmission Date: 20160525
  Serious: Yes (Disabling, Other)
  Sender: FDA-Public Use
  Company Number: GB-JNJFOC-20151103233

PATIENT
  Sex: Male
  Weight: 101 kg

DRUGS (2)
  1. IMBRUVICA [Suspect]
     Active Substance: IBRUTINIB
     Indication: CHRONIC LYMPHOCYTIC LEUKAEMIA
     Route: 048
     Dates: start: 20140930, end: 20150319
  2. ASPIRIN. [Suspect]
     Active Substance: ASPIRIN
     Indication: PROPHYLAXIS
     Route: 048
     Dates: start: 2004

REACTIONS (4)
  - Vitreous haemorrhage [Recovered/Resolved with Sequelae]
  - Visual impairment [Unknown]
  - Eye haemorrhage [Recovered/Resolved with Sequelae]
  - Diabetic retinopathy [Unknown]
